FAERS Safety Report 20863010 (Version 2)
Quarter: 2022Q2

REPORT INFORMATION
  Report Type: Report from Study
  Country: US (occurrence: US)
  Receive Date: 20220523
  Receipt Date: 20220527
  Transmission Date: 20220721
  Serious: Yes (Hospitalization)
  Sender: FDA-Public Use
  Company Number: US-ALNYLAM PHARMACEUTICALS, INC.-ALN-2022-001757

PATIENT

DRUGS (1)
  1. ONPATTRO [Suspect]
     Active Substance: PATISIRAN SODIUM
     Indication: Hereditary neuropathic amyloidosis
     Dosage: 22.8 MILLIGRAM, Q3W
     Route: 042
     Dates: start: 20210623

REACTIONS (3)
  - Localised infection [Recovering/Resolving]
  - Infusion site extravasation [Unknown]
  - Influenza [Unknown]
